FAERS Safety Report 23220853 (Version 1)
Quarter: 2023Q4

REPORT INFORMATION
  Report Type: Report from Study
  Country: US (occurrence: US)
  Receive Date: 20231123
  Receipt Date: 20231123
  Transmission Date: 20240110
  Serious: Yes (Other)
  Sender: FDA-Public Use
  Company Number: US-ABBVIE-5382448

PATIENT
  Sex: Female

DRUGS (2)
  1. HUMIRA [Suspect]
     Active Substance: ADALIMUMAB
     Indication: Colitis ulcerative
     Dosage: FORM STRENGTH: 40 MG, CITRATE FREE
     Route: 058
  2. HUMIRA [Suspect]
     Active Substance: ADALIMUMAB
     Dosage: FORM STRENGTH: 40 MG, CITRATE FREE
     Route: 058

REACTIONS (10)
  - Oesophageal obstruction [Recovering/Resolving]
  - Blood potassium decreased [Unknown]
  - Chronic obstructive pulmonary disease [Recovering/Resolving]
  - Arthritis [Recovering/Resolving]
  - Hypertension [Recovering/Resolving]
  - Bronchitis [Recovering/Resolving]
  - Respiratory tract infection [Recovering/Resolving]
  - Nephropathy [Recovering/Resolving]
  - Blood magnesium abnormal [Recovering/Resolving]
  - Diarrhoea [Recovering/Resolving]
